FAERS Safety Report 19122418 (Version 4)
Quarter: 2022Q2

REPORT INFORMATION
  Report Type: Report from Study
  Country: US (occurrence: US)
  Receive Date: 20210412
  Receipt Date: 20220420
  Transmission Date: 20220721
  Serious: Yes (Hospitalization, Other)
  Sender: FDA-Public Use
  Company Number: US-TAKEDA-US201848078

PATIENT
  Sex: Female

DRUGS (1)
  1. HUMAN IMMUNOGLOBULIN G [Suspect]
     Active Substance: HUMAN IMMUNOGLOBULIN G
     Indication: Selective IgG subclass deficiency
     Dosage: UNK
     Route: 042

REACTIONS (11)
  - Hospitalisation [Unknown]
  - Breast cancer female [Unknown]
  - Adverse drug reaction [Unknown]
  - Memory impairment [Unknown]
  - Blood pressure decreased [Unknown]
  - Malaise [Unknown]
  - Asthenia [Unknown]
  - Anaemia [Unknown]
  - Osteoporosis [Unknown]
  - Sleep apnoea syndrome [Unknown]
  - Product dose omission issue [Unknown]
